FAERS Safety Report 6434718-6 (Version None)
Quarter: 2009Q4

REPORT INFORMATION
  Report Type: 
  Country: None (occurrence: None)
  Receive Date: 20091110
  Receipt Date: 20091104
  Transmission Date: 20100525
  Serious: Yes (Hospitalization)
  Sender: FDA-Public Use
  Company Number: GXKR2009DE12127

PATIENT
  Age: 52 Year
  Sex: Male
  Weight: 83 kg

DRUGS (5)
  1. PREDNISOLONE [Suspect]
     Indication: ASTHMA
     Dosage: 30 MG, UNK
     Route: 048
     Dates: start: 20090701, end: 20090801
  2. LEVOFLOXACIN [Suspect]
     Indication: BRONCHITIS
     Dosage: 750 MG, QD
     Route: 048
     Dates: start: 20090806, end: 20090814
  3. FLUTICASONE W/SALMETEROL [Concomitant]
     Indication: ASTHMA
     Route: 065
  4. METFORMIN HCL [Concomitant]
     Indication: TYPE 2 DIABETES MELLITUS
     Route: 048
  5. HYDROCHLOROTHIAZIDE W/TELMISARTAN [Concomitant]
     Indication: HYPERTENSION
     Route: 065

REACTIONS (2)
  - MUSCULOSKELETAL DISCOMFORT [None]
  - TENDON RUPTURE [None]
